FAERS Safety Report 19970761 (Version 1)
Quarter: 2021Q4

REPORT INFORMATION
  Report Type: Spontaneous
  Country: US (occurrence: US)
  Receive Date: 20211019
  Receipt Date: 20211019
  Transmission Date: 20220303
  Serious: Yes (Other)
  Sender: FDA-Public Use
  Company Number: US-MAYNE PHARMA-2021MYN000232

PATIENT

DRUGS (5)
  1. CLOZAPINE [Suspect]
     Active Substance: CLOZAPINE
     Indication: Product used for unknown indication
     Dosage: UNK
     Route: 065
     Dates: start: 201703, end: 201704
  2. CLOZAPINE [Suspect]
     Active Substance: CLOZAPINE
     Indication: Craniocerebral injury
     Dosage: UNK
     Route: 065
     Dates: start: 201706
  3. CLOZAPINE [Suspect]
     Active Substance: CLOZAPINE
     Dosage: 175 MG
     Route: 048
     Dates: start: 20190430
  4. DEPAKOTE [Suspect]
     Active Substance: DIVALPROEX SODIUM
     Indication: Product used for unknown indication
     Dosage: UNK
     Route: 065
     Dates: start: 20190430
  5. TEGRETOL [Suspect]
     Active Substance: CARBAMAZEPINE
     Indication: Craniocerebral injury
     Dosage: UNK
     Route: 065
     Dates: start: 201703, end: 201704

REACTIONS (5)
  - Syncope [Not Recovered/Not Resolved]
  - Dyspnoea [Not Recovered/Not Resolved]
  - Cough [Not Recovered/Not Resolved]
  - Choking [Unknown]
  - Malaise [Not Recovered/Not Resolved]
